FAERS Safety Report 10175719 (Version 2)
Quarter: 2014Q2

REPORT INFORMATION
  Report Type: Report from Study
  Country: JP (occurrence: JP)
  Receive Date: 20140516
  Receipt Date: 20140516
  Transmission Date: 20141212
  Serious: Yes (Hospitalization)
  Sender: FDA-Public Use
  Company Number: JP-ROCHE-1175558

PATIENT
  Age: 69 Year
  Sex: Female

DRUGS (33)
  1. OBINUTUZUMAB [Suspect]
     Indication: B-CELL LYMPHOMA
     Dosage: VOLUME OF LAST DOSE 100 ML, DOSE CONCENTRATION, 4 MG/ML, LAST DOSE PRIOR TO SAE RECEIVED ON 20/DEC/2
     Route: 042
     Dates: start: 20121206
  2. CYCLOPHOSPHAMIDE [Suspect]
     Indication: B-CELL LYMPHOMA
     Dosage: LAST DOSE TAKEN: 1087.5 MG, MOST RECENT DOSE PRIOR TO ADVERSE EVENT: 07/DEC/2012
     Route: 042
     Dates: start: 20121207
  3. DOXORUBICIN [Suspect]
     Indication: B-CELL LYMPHOMA
     Dosage: LAST DOSE TAKEN: 72.5 MG, MOST RECENT DOSE PRIOR TO ADVERSE EVENT: 07/DEC/2012
     Route: 042
     Dates: start: 20121207
  4. PREDNISONE [Suspect]
     Indication: B-CELL LYMPHOMA
     Dosage: LAST DOSE TAKEN: 100 MG, MOST RECENT DOSE PRIOR TO SAE 10/DEC/2012
     Route: 042
     Dates: start: 20121206
  5. VINCRISTINE [Suspect]
     Indication: B-CELL LYMPHOMA
     Dosage: LAST DOSE TAKEN: 2 MG, ROUTE: IV PUSH, MOST RECENT DOSE PRIOR TO SAE 07/DEC/2012
     Route: 040
     Dates: start: 20121207
  6. PANTETHINE [Concomitant]
     Indication: CONSTIPATION
     Route: 065
     Dates: start: 20121206
  7. AMBROXOL HYDROCHLORIDE [Concomitant]
     Indication: COUGH
     Route: 065
     Dates: start: 20121213
  8. AMBROXOL HYDROCHLORIDE [Concomitant]
     Indication: HYDROTHORAX
  9. SULPIRIDE [Concomitant]
     Indication: GASTRITIS
     Route: 065
     Dates: start: 20121213
  10. ETIZOLAM [Concomitant]
     Indication: ANXIETY DISORDER
  11. CETIRIZINE HYDROCHLORIDE [Concomitant]
     Indication: RASH
     Route: 065
     Dates: start: 20121211
  12. ESOMEPRAZOLE MAGNESIUM [Concomitant]
     Indication: GASTRITIS
     Route: 065
     Dates: start: 20121206
  13. MAGNESIUM OXIDE [Concomitant]
     Indication: CONSTIPATION
     Route: 065
     Dates: start: 20121206
  14. POVIDONE-IODINE [Concomitant]
     Indication: INFECTION
     Route: 065
     Dates: start: 20121206
  15. FEBUXOSTAT [Concomitant]
     Indication: TUMOUR LYSIS SYNDROME
     Route: 065
     Dates: start: 20121206, end: 20121212
  16. ACETAMINOPHEN [Concomitant]
     Indication: INFUSION RELATED REACTION
     Route: 065
     Dates: start: 20121206
  17. DEXCHLORPHENIRAMINE MALEATE [Concomitant]
     Indication: INFUSION RELATED REACTION
     Route: 065
     Dates: start: 20121206
  18. LEVOFLOXACIN HYDRATE [Concomitant]
     Indication: INFECTION
     Route: 065
     Dates: start: 20121211, end: 20130108
  19. REBAMIPIDE [Concomitant]
     Indication: GASTRITIS
     Route: 065
     Dates: start: 20121212
  20. HEPARINOID [Concomitant]
     Indication: RASH
     Route: 065
     Dates: start: 20121226
  21. ENSURE.H [Concomitant]
     Indication: DECREASED APPETITE
     Route: 065
     Dates: start: 20121227, end: 20130127
  22. RASBURICASE [Concomitant]
     Indication: TUMOUR LYSIS SYNDROME
     Route: 065
     Dates: start: 20121205, end: 20121205
  23. CHLORPHENIRAMINE MALEATE [Concomitant]
     Indication: INFECTION
     Route: 065
     Dates: start: 20121206
  24. FUROSEMIDE [Concomitant]
     Indication: OEDEMA PERIPHERAL
     Route: 065
     Dates: start: 20121206, end: 20121208
  25. OXYGEN [Concomitant]
     Indication: INFUSION RELATED REACTION
     Route: 065
     Dates: start: 20121206, end: 20121206
  26. OXYGEN [Concomitant]
     Route: 065
     Dates: start: 20121228, end: 20130102
  27. OXYGEN [Concomitant]
     Route: 065
     Dates: start: 20130104, end: 20130104
  28. GRANISETRON HYDROCHLORIDE [Concomitant]
     Indication: PROPHYLAXIS OF NAUSEA AND VOMITING
     Route: 065
     Dates: start: 20121207
  29. SODIUM BICARBONATE [Concomitant]
     Route: 065
     Dates: start: 20130109, end: 20130110
  30. FILGRASTIM [Concomitant]
     Indication: NEUTROPHIL COUNT DECREASED
     Route: 065
     Dates: start: 20121210, end: 20121211
  31. FILGRASTIM [Concomitant]
     Route: 065
     Dates: start: 20121214, end: 20121219
  32. BAKTAR [Concomitant]
     Indication: INFECTION PROPHYLAXIS
     Route: 065
     Dates: start: 20121206
  33. PROCHLORPERAZINE MESILATE [Concomitant]
     Indication: PROPHYLAXIS OF NAUSEA AND VOMITING
     Route: 065
     Dates: start: 20121226, end: 20121226

REACTIONS (1)
  - Pleural effusion [Recovered/Resolved]
